FAERS Safety Report 7418272-8 (Version None)
Quarter: 2011Q2

REPORT INFORMATION
  Report Type: 
  Country: None (occurrence: None)
  Receive Date: 20110415
  Receipt Date: 20110408
  Transmission Date: 20111010
  Serious: Yes (Hospitalization)
  Sender: FDA-Public Use
  Company Number: US-GENZYME-THYM-1002399

PATIENT

DRUGS (3)
  1. THYMOGLOBULIN [Suspect]
     Indication: MYELODYSPLASTIC SYNDROME
     Dosage: 2.5 MG/KG, QD
     Route: 042
     Dates: start: 20101122, end: 20101124
  2. BETA-LACTAM ANTIBACTERIALS, PENICILLINS [Concomitant]
     Indication: PROSTATIC ABSCESS
     Dosage: UNK
     Dates: start: 20100101, end: 20100101
  3. VALACICLOVIR [Concomitant]
     Indication: ANTIVIRAL PROPHYLAXIS
     Dosage: UNK

REACTIONS (3)
  - DRUG ERUPTION [None]
  - MYELODYSPLASTIC SYNDROME [None]
  - PROSTATIC ABSCESS [None]
